FAERS Safety Report 7641833-8 (Version None)
Quarter: 2011Q3

REPORT INFORMATION
  Report Type: 
  Country: None (occurrence: None)
  Receive Date: 20110728
  Receipt Date: 20110721
  Transmission Date: 20111222
  Serious: Yes (Other)
  Sender: FDA-Public Use
  Company Number: US-JNJFOC-20110205719

PATIENT
  Sex: Female
  Weight: 121.56 kg

DRUGS (11)
  1. EFFEXOR XR [Concomitant]
     Route: 048
  2. OXYCONTIN [Concomitant]
     Route: 048
  3. NUCYNTA [Suspect]
     Indication: PAIN
     Route: 065
     Dates: end: 20110211
  4. ZOVIRAX [Concomitant]
     Route: 065
  5. NUCYNTA [Suspect]
     Route: 065
     Dates: start: 20110204
  6. ROBAXIN [Concomitant]
     Indication: MUSCLE SPASMS
     Route: 065
  7. VITAMIN D2 [Concomitant]
     Route: 065
  8. OXYCODONE HYDROCHLORIDE [Concomitant]
     Indication: PAIN
     Route: 048
  9. PEPCID [Concomitant]
     Route: 065
  10. WELLABUTRIN [Concomitant]
     Route: 048
  11. FUROSEMIDE [Concomitant]
     Route: 048

REACTIONS (6)
  - PHARYNGEAL OEDEMA [None]
  - EYE SWELLING [None]
  - DIPLOPIA [None]
  - SWOLLEN TONGUE [None]
  - BALANCE DISORDER [None]
  - CONFUSIONAL STATE [None]
